FAERS Safety Report 13576923 (Version 1)
Quarter: 2017Q2

REPORT INFORMATION
  Report Type: Spontaneous
  Country: US (occurrence: US)
  Receive Date: 20170524
  Receipt Date: 20170524
  Transmission Date: 20170830
  Serious: No
  Sender: FDA-Public Use
  Company Number: US-TEVA-764991USA

PATIENT
  Sex: Male
  Weight: 102.15 kg

DRUGS (3)
  1. ARMODAFINIL. [Suspect]
     Active Substance: ARMODAFINIL
     Indication: HYPERSOMNIA
     Dates: start: 2016
  2. NUVIGIL [Suspect]
     Active Substance: ARMODAFINIL
     Indication: HYPERSOMNIA
     Dosage: MORNING
  3. ARMODAFINIL. [Suspect]
     Active Substance: ARMODAFINIL
     Indication: SHIFT WORK DISORDER

REACTIONS (4)
  - Drug effect incomplete [Unknown]
  - Feeling jittery [Unknown]
  - Anxiety [Recovered/Resolved]
  - Product substitution issue [Unknown]
